FAERS Safety Report 4418110-1 (Version None)
Quarter: 2004Q3

REPORT INFORMATION
  Report Type: 
  Country: None (occurrence: None)
  Receive Date: 20040805
  Receipt Date: 20040805
  Transmission Date: 20050211
  Serious: Yes (Other)
  Sender: FDA-Public Use
  Company Number: None

PATIENT
  Age: 36 Year
  Sex: Female
  Weight: 70.7611 kg

DRUGS (3)
  1. ATAZANAVIR [Suspect]
     Indication: HIV INFECTION
     Dosage: 300 MG QD PO
     Route: 048
     Dates: start: 20040517
  2. SAQUINIVIR [Suspect]
     Dosage: 1600 MG QD PO
     Route: 048
     Dates: start: 20040610
  3. RITONAVIR [Concomitant]

REACTIONS (1)
  - PREGNANCY [None]
